FAERS Safety Report 23767283 (Version 3)
Quarter: 2024Q2

REPORT INFORMATION
  Report Type: Report from Study
  Country: JP (occurrence: JP)
  Receive Date: 20240422
  Receipt Date: 20240620
  Transmission Date: 20240716
  Serious: Yes (Life-Threatening, Hospitalization, Other)
  Sender: FDA-Public Use
  Company Number: JP-CHUGAI-2022014319

PATIENT
  Age: 56 Year
  Sex: Female
  Weight: 65.7 kg

DRUGS (5)
  1. ENSPRYNG [Suspect]
     Active Substance: SATRALIZUMAB-MWGE
     Indication: Neuromyelitis optica spectrum disorder
     Route: 058
     Dates: start: 20210120
  2. CELLCEPT [Concomitant]
     Active Substance: MYCOPHENOLATE MOFETIL
     Indication: Neuromyelitis optica spectrum disorder
     Dosage: UNK
     Route: 048
  3. PROGRAF [Concomitant]
     Active Substance: TACROLIMUS
     Indication: Neuromyelitis optica spectrum disorder
     Dosage: 3 MILLIGRAM
  4. PROGRAF [Concomitant]
     Active Substance: TACROLIMUS
     Dosage: 1 MILLIGRAM
     Dates: start: 20210320
  5. MIZORIBINE [Concomitant]
     Active Substance: MIZORIBINE
     Dosage: 150 MILLIGRAM

REACTIONS (26)
  - Anaemia [Recovered/Resolved]
  - Muscular weakness [Unknown]
  - Renal neoplasm [Unknown]
  - Perinephric abscess [Recovered/Resolved]
  - Peritonitis [Recovering/Resolving]
  - Pneumonia aspiration [Recovering/Resolving]
  - Blood albumin decreased [Not Recovered/Not Resolved]
  - Blood glucose increased [Not Recovered/Not Resolved]
  - Blood immunoglobulin G increased [Recovering/Resolving]
  - Blood potassium decreased [Not Recovered/Not Resolved]
  - Neurogenic bladder [Unknown]
  - Renal impairment [Recovering/Resolving]
  - Proteinuria [Unknown]
  - Intra-abdominal haemorrhage [Recovering/Resolving]
  - Haemorrhage urinary tract [Unknown]
  - Cystitis [Recovered/Resolved]
  - Blood cholesterol increased [Not Recovered/Not Resolved]
  - Blood immunoglobulin G increased [Not Recovered/Not Resolved]
  - Hypoalbuminaemia [Recovering/Resolving]
  - Hyperglycaemia [Recovering/Resolving]
  - Alanine aminotransferase increased [Unknown]
  - Dyslipidaemia [Not Recovered/Not Resolved]
  - Diabetes mellitus [Recovering/Resolving]
  - Skin necrosis [Recovered/Resolved]
  - Neuromyelitis optica spectrum disorder [Recovered/Resolved]
  - Pyelonephritis [Recovered/Resolved]

NARRATIVE: CASE EVENT DATE: 20210512
